FAERS Safety Report 19436772 (Version 1)
Quarter: 2021Q2

REPORT INFORMATION
  Report Type: Spontaneous
  Country: FR (occurrence: FR)
  Receive Date: 20210618
  Receipt Date: 20210618
  Transmission Date: 20210717
  Serious: Yes (Hospitalization)
  Sender: FDA-Public Use
  Company Number: FR-UNICHEM PHARMACEUTICALS (USA) INC-UCM202106-000539

PATIENT
  Age: 38 Year
  Sex: Female

DRUGS (4)
  1. ZOPICLONE [Suspect]
     Active Substance: ZOPICLONE
     Indication: OVERDOSE
     Dosage: 105 MG
  2. VENLAFAXINE [Suspect]
     Active Substance: VENLAFAXINE HYDROCHLORIDE
     Indication: OVERDOSE
     Dosage: 12 G
  3. BROMAZEPAM [Suspect]
     Active Substance: BROMAZEPAM
     Indication: OVERDOSE
     Dosage: AN UNDEFINED QUANTITY
  4. QUETIAPINE. [Suspect]
     Active Substance: QUETIAPINE
     Indication: OVERDOSE
     Dosage: 48 G

REACTIONS (8)
  - Overdose [Unknown]
  - Electrocardiogram QT prolonged [Recovering/Resolving]
  - Coma [Recovering/Resolving]
  - Generalised tonic-clonic seizure [Recovering/Resolving]
  - Hypotension [Recovering/Resolving]
  - Sinus tachycardia [Recovering/Resolving]
  - Mydriasis [Recovering/Resolving]
  - Toxicity to various agents [Recovering/Resolving]
